FAERS Safety Report 6610924-2 (Version None)
Quarter: 2010Q1

REPORT INFORMATION
  Report Type: 
  Country: None (occurrence: None)
  Receive Date: 20100222
  Receipt Date: 20100207
  Transmission Date: 20100710
  Serious: Yes (Other)
  Sender: FDA-Public Use
  Company Number: 1-21600305

PATIENT
  Age: 48 Year
  Sex: Female
  Weight: 58.9676 kg

DRUGS (4)
  1. SOLODYN [Suspect]
     Indication: ACNE
     Dosage: 65 MG, ONCE, ORAL
     Route: 048
     Dates: start: 20100204, end: 20100204
  2. ADDERALL                 (AMPHETAMINE, DEXTROAMPHETAMINE MIXED SALTS) [Concomitant]
  3. CALCIUM [Concomitant]
  4. MULTI-VITAMIN [Concomitant]

REACTIONS (7)
  - DIZZINESS [None]
  - FALL [None]
  - IMPAIRED WORK ABILITY [None]
  - LOSS OF CONSCIOUSNESS [None]
  - MOUTH INJURY [None]
  - SWELLING [None]
  - TOOTH LOSS [None]
